FAERS Safety Report 10971826 (Version 1)
Quarter: 2015Q1

REPORT INFORMATION
  Report Type: Spontaneous
  Country: ES (occurrence: ES)
  Receive Date: 20150331
  Receipt Date: 20150331
  Transmission Date: 20150721
  Serious: Yes (Life-Threatening, Hospitalization)
  Sender: FDA-Public Use
  Company Number: ES-BAXTER-2015BAX015485

PATIENT
  Age: 10 Month
  Sex: Male
  Weight: 11 kg

DRUGS (8)
  1. SEPTRIN PEDIATRICO 8 MG/40 MG/ML SUSPENSION ORAL , 1 FRASCO DE 100 ML [Suspect]
     Active Substance: SULFAMETHOXAZOLE\TRIMETHOPRIM
     Indication: EVIDENCE BASED TREATMENT
     Dosage: 25 MG/12
     Route: 048
     Dates: start: 20140324, end: 20140401
  2. METRONIDAZOL [Suspect]
     Active Substance: METRONIDAZOLE
     Indication: EVIDENCE BASED TREATMENT
     Dosage: 150MG/12H
     Route: 042
     Dates: start: 20140401
  3. FENITOINA [Suspect]
     Active Substance: PHENYTOIN
     Indication: CONVULSION PROPHYLAXIS
     Dosage: 50 MG/12 HR X 7 DAYS, THEN IN DECREASING DOSES
     Route: 042
     Dates: start: 20140323, end: 20140403
  4. ACICLOVIR [Suspect]
     Active Substance: ACYCLOVIR
     Indication: PROPHYLAXIS AGAINST GRAFT VERSUS HOST DISEASE
     Dosage: EVERY 12 HOURS
     Route: 042
     Dates: start: 20140401
  5. GENOXAL [Suspect]
     Active Substance: CYCLOPHOSPHAMIDE
     Indication: STEM CELL TRANSPLANT
     Route: 042
     Dates: start: 20140330, end: 20140331
  6. UROMITEXAN_MESNA 100.00 MG/ML_SOLUTION FOR INFUSION_VIAL, MULTI - DOSE [Suspect]
     Active Substance: MESNA
     Indication: PRODUCT USED FOR UNKNOWN INDICATION
     Dosage: 120 MG + 1500 MG
     Route: 042
     Dates: start: 20140330, end: 20140331
  7. MICAFUNGINA [Suspect]
     Active Substance: MICAFUNGIN
     Indication: PRODUCT USED FOR UNKNOWN INDICATION
     Route: 042
     Dates: start: 20140401
  8. BUSULFANO [Suspect]
     Active Substance: BUSULFAN
     Indication: STEM CELL TRANSPLANT
     Route: 042
     Dates: start: 20140325, end: 20140328

REACTIONS (2)
  - Venoocclusive liver disease [Recovering/Resolving]
  - Cytomegalovirus test positive [None]

NARRATIVE: CASE EVENT DATE: 20140410
